FAERS Safety Report 23986535 (Version 3)
Quarter: 2024Q3

REPORT INFORMATION
  Report Type: Report from Study
  Country: US (occurrence: US)
  Receive Date: 20240618
  Receipt Date: 20240711
  Transmission Date: 20241017
  Serious: Yes (Hospitalization, Other)
  Sender: GILEAD
  Company Number: US-GILEAD-2024-0677186

PATIENT
  Sex: Male

DRUGS (3)
  1. AMBRISENTAN [Suspect]
     Active Substance: AMBRISENTAN
     Indication: Pulmonary hypertension
     Dosage: 10 MG, QD
     Route: 065
     Dates: start: 20240425
  2. UPTRAVI [Concomitant]
     Active Substance: SELEXIPAG
  3. SILDENAFIL [Concomitant]
     Active Substance: SILDENAFIL

REACTIONS (12)
  - Pulmonary hypertension [Unknown]
  - Atrial fibrillation [Unknown]
  - Catheterisation cardiac abnormal [Unknown]
  - Pruritus [Unknown]
  - Flushing [Unknown]
  - Dyspnoea [Unknown]
  - Hypervolaemia [Unknown]
  - Arthritis [Unknown]
  - Right ventricular dysfunction [Unknown]
  - Iron deficiency anaemia [Unknown]
  - Malaise [Unknown]
  - Herpes zoster [Unknown]
